FAERS Safety Report 9638780 (Version 2)
Quarter: 2013Q4

REPORT INFORMATION
  Report Type: Spontaneous
  Country: US (occurrence: US)
  Receive Date: 20131022
  Receipt Date: 20131022
  Transmission Date: 20140711
  Serious: No
  Sender: FDA-Public Use
  Company Number: US-BRISTOL-MYERS SQUIBB COMPANY-19188549

PATIENT
  Age: 89 Year
  Sex: Male
  Weight: 51.25 kg

DRUGS (5)
  1. ELIQUIS [Suspect]
     Indication: ATRIAL FIBRILLATION
     Route: 048
     Dates: start: 20130517, end: 20130614
  2. FUROSEMIDE [Concomitant]
  3. HYTRIN [Concomitant]
  4. METOPROLOL SUCCINATE [Concomitant]
  5. SYNTHROID [Concomitant]

REACTIONS (1)
  - Weight decreased [Unknown]
